FAERS Safety Report 9516721 (Version 1)
Quarter: 2013Q1

REPORT INFORMATION
  Report Type: Spontaneous
  Country: US (occurrence: None)
  Receive Date: 20130305
  Receipt Date: 20130305
  Transmission Date: 20140127
  Serious: Yes (Hospitalization, Other)
  Sender: FDA-Public Use
  Company Number: 163-21880-12120555

PATIENT
  Age: 76 Year
  Sex: Male
  Weight: 57.61 kg

DRUGS (2)
  1. REVLIMID (LENALIDOMIDE) (25 MILLIGRAM, CAPSULES) [Suspect]
     Dosage: 25 MG , 21 IN 21 D, PO THERAPY DATES 05/15/2012 -HOLD
     Route: 048
     Dates: start: 20120515
  2. DOXAZOSIN MESYLATE (DOXAZOSIN MESILATE) [Concomitant]

REACTIONS (3)
  - Renal failure [None]
  - Haemoglobin decreased [None]
  - Haematocrit abnormal [None]
